FAERS Safety Report 14307603 (Version 1)
Quarter: 2017Q4

REPORT INFORMATION
  Report Type: Spontaneous
  Country: US (occurrence: US)
  Receive Date: 20171219
  Receipt Date: 20171219
  Transmission Date: 20180321
  Serious: Yes (Other)
  Sender: FDA-Public Use
  Company Number: None

PATIENT
  Age: 71 Year
  Sex: Male

DRUGS (1)
  1. EYLEA [Suspect]
     Active Substance: AFLIBERCEPT
     Dosage: ?          OTHER ROUTE:INTRAVITREAL?
     Dates: start: 20171011, end: 20171011

REACTIONS (2)
  - Endophthalmitis [None]
  - Visual acuity reduced [None]

NARRATIVE: CASE EVENT DATE: 20171011
